FAERS Safety Report 6742744-2 (Version None)
Quarter: 2010Q2

REPORT INFORMATION
  Report Type: 
  Country: None (occurrence: None)
  Receive Date: 20100526
  Receipt Date: 20100219
  Transmission Date: 20101027
  Serious: No
  Sender: FDA-Public Use
  Company Number: US-ABBOTT-10P-163-0628575-00

PATIENT
  Age: 86 Year
  Sex: Female
  Weight: 59.02 kg

DRUGS (8)
  1. ZEMPLAR [Suspect]
     Indication: RENAL FAILURE
     Dates: start: 20090801
  2. PROCRIT [Concomitant]
     Indication: DRUG USE FOR UNKNOWN INDICATION
  3. ASPIRIN [Concomitant]
     Indication: DRUG USE FOR UNKNOWN INDICATION
  4. UNKNOWN DIURETICS [Concomitant]
     Indication: DRUG USE FOR UNKNOWN INDICATION
  5. UNKNOWN HIGH BLOOD PRESSURE MEDICATION [Concomitant]
     Indication: DRUG USE FOR UNKNOWN INDICATION
  6. UNKNOWN ANTIDIABETIC MEDICATIONS [Concomitant]
     Indication: DRUG USE FOR UNKNOWN INDICATION
  7. LIPITOR [Concomitant]
     Indication: DRUG USE FOR UNKNOWN INDICATION
  8. UNKNOWN ANTIDEPRESSANT [Concomitant]
     Indication: DRUG USE FOR UNKNOWN INDICATION

REACTIONS (2)
  - BLOOD PHOSPHORUS DECREASED [None]
  - VITAMIN D DECREASED [None]
